FAERS Safety Report 6291524-3 (Version None)
Quarter: 2009Q3

REPORT INFORMATION
  Report Type: 
  Country: None (occurrence: None)
  Receive Date: 20090730
  Receipt Date: 20090730
  Transmission Date: 20100115
  Serious: Yes (Other)
  Sender: FDA-Public Use
  Company Number: None

PATIENT
  Age: 38 Year
  Sex: Male
  Weight: 65.7716 kg

DRUGS (1)
  1. ZICAM COLD REMEDY SWABS [Suspect]
     Dosage: 3 OVER 4 MO- PERIOD NASAL
     Route: 045
     Dates: start: 20071001, end: 20080101

REACTIONS (2)
  - HYPOGEUSIA [None]
  - HYPOSMIA [None]
